FAERS Safety Report 6664407-4 (Version None)
Quarter: 2010Q2

REPORT INFORMATION
  Report Type: 
  Country: None (occurrence: None)
  Receive Date: 20100401
  Receipt Date: 20100329
  Transmission Date: 20101027
  Serious: Yes (Death)
  Sender: FDA-Public Use
  Company Number: PHHY2010MX19009

PATIENT
  Sex: Male

DRUGS (3)
  1. DIOVAN HCT [Suspect]
     Indication: HYPERTENSION
     Dosage: TABLET (160/25 MG) PER DAY
     Route: 048
  2. CORTISONE [Concomitant]
     Dosage: HALF TABLET PER DAY
  3. ZELMAC [Concomitant]
     Indication: IRRITABLE BOWEL SYNDROME

REACTIONS (1)
  - DEATH [None]
